FAERS Safety Report 5777126-3 (Version None)
Quarter: 2008Q2

REPORT INFORMATION
  Report Type: 
  Country: None (occurrence: None)
  Receive Date: 20080618
  Receipt Date: 20080610
  Transmission Date: 20081010
  Serious: Yes (Hospitalization)
  Sender: FDA-Public Use
  Company Number: US-ASTRAZENECA-2008UW11662

PATIENT
  Age: 56 Year
  Sex: Female
  Weight: 54.4 kg

DRUGS (6)
  1. SEROQUEL [Suspect]
     Indication: BIPOLAR DISORDER
     Route: 048
     Dates: start: 20070801
  2. SEROQUEL [Suspect]
     Route: 048
  3. SEROQUEL [Suspect]
     Route: 048
  4. LEXAPRO [Concomitant]
     Indication: DEPRESSION
  5. NEXIUM [Concomitant]
     Indication: REFLUX OESOPHAGITIS
     Route: 048
  6. CRESTOR [Concomitant]
     Indication: HYPERCHOLESTEROLAEMIA
     Route: 048

REACTIONS (7)
  - ALCOHOL USE [None]
  - IMPRISONMENT [None]
  - MENTAL IMPAIRMENT [None]
  - NASAL CONGESTION [None]
  - REHABILITATION THERAPY [None]
  - ROAD TRAFFIC ACCIDENT [None]
  - SNEEZING [None]
